FAERS Safety Report 7373719-0 (Version None)
Quarter: 2011Q1

REPORT INFORMATION
  Report Type: 
  Country: None (occurrence: None)
  Receive Date: 20110325
  Receipt Date: 20100708
  Transmission Date: 20110831
  Serious: No
  Sender: FDA-Public Use
  Company Number: US-MYLANLABS-2010S1012173

PATIENT
  Age: 58 Year
  Sex: Male
  Weight: 77.11 kg

DRUGS (3)
  1. FLECAINIDE ACETATE [Concomitant]
     Indication: TACHYCARDIA
     Dates: start: 20070101
  2. PROPRANOLOL HYDROCHLORIDE [Suspect]
     Indication: PALPITATIONS
     Route: 048
     Dates: start: 20100301, end: 20100707
  3. PROPRANOLOL HYDROCHLORIDE [Suspect]
     Indication: PALPITATIONS
     Route: 048
     Dates: start: 20100707

REACTIONS (1)
  - HEADACHE [None]
